FAERS Safety Report 13265664 (Version 4)
Quarter: 2017Q1

REPORT INFORMATION
  Report Type: Report from Study
  Country: BR (occurrence: BR)
  Receive Date: 20170223
  Receipt Date: 20170316
  Transmission Date: 20170428
  Serious: Yes (Hospitalization)
  Sender: FDA-Public Use
  Company Number: BR-JNJFOC-20170127798

PATIENT
  Age: 18 Year
  Sex: Female
  Weight: 62 kg

DRUGS (7)
  1. LEVOMEPROMAZINE MALEATE [Concomitant]
     Active Substance: LEVOMEPROMAZINE MALEATE
     Route: 065
  2. REMICADE [Suspect]
     Active Substance: INFLIXIMAB
     Indication: CROHN^S DISEASE
     Route: 042
  3. REMICADE [Suspect]
     Active Substance: INFLIXIMAB
     Indication: CROHN^S DISEASE
     Route: 042
  4. REMICADE [Suspect]
     Active Substance: INFLIXIMAB
     Indication: CROHN^S DISEASE
     Route: 042
     Dates: start: 20170115
  5. AZATHIOPRINE. [Concomitant]
     Active Substance: AZATHIOPRINE
     Route: 065
  6. REMICADE [Suspect]
     Active Substance: INFLIXIMAB
     Indication: CROHN^S DISEASE
     Route: 042
     Dates: start: 2014
  7. LIOLACTIL [Concomitant]
     Route: 065

REACTIONS (16)
  - Abdominal pain [Recovered/Resolved]
  - Depression [Unknown]
  - Fatigue [Unknown]
  - Off label use [Unknown]
  - Dizziness [Unknown]
  - Diarrhoea haemorrhagic [Recovered/Resolved]
  - Inappropriate schedule of drug administration [Unknown]
  - Vomiting [Unknown]
  - Stress [Unknown]
  - Somnolence [Unknown]
  - Pain in extremity [Unknown]
  - Drug prescribing error [Unknown]
  - Headache [Unknown]
  - Product use issue [Unknown]
  - Arthralgia [Unknown]
  - Adverse event [Unknown]

NARRATIVE: CASE EVENT DATE: 2014
